FAERS Safety Report 25323196 (Version 1)
Quarter: 2025Q2

REPORT INFORMATION
  Report Type: Spontaneous
  Country: SI (occurrence: SI)
  Receive Date: 20250516
  Receipt Date: 20250516
  Transmission Date: 20250716
  Serious: Yes (Other)
  Sender: BAYER HEALTHCARE PHARMACEUTICALS INC.
  Company Number: SI-BAYER-2025A063036

PATIENT
  Age: 73 Year
  Sex: Female

DRUGS (9)
  1. KERENDIA [Suspect]
     Active Substance: FINERENONE
  2. GLIQUIDONE [Concomitant]
     Active Substance: GLIQUIDONE
     Dosage: 30 MG, BID
  3. SEMAGLUTIDE [Concomitant]
     Active Substance: SEMAGLUTIDE
     Route: 048
  4. EMPAGLIFLOZIN [Concomitant]
     Active Substance: EMPAGLIFLOZIN
  5. INSULIN GLARGINE [Concomitant]
     Active Substance: INSULIN GLARGINE
  6. INSULIN GLARGINE [Concomitant]
     Active Substance: INSULIN GLARGINE
  7. BISOPROLOL [Concomitant]
     Active Substance: BISOPROLOL
  8. Fosinopril hydrochlorothiazide winthrop [Concomitant]
  9. ATORVASTATIN [Concomitant]
     Active Substance: ATORVASTATIN

REACTIONS (2)
  - Hypertension [None]
  - Hyperkalaemia [None]
